FAERS Safety Report 8813673 (Version 1)
Quarter: 2012Q4

REPORT INFORMATION
  Report Type: 
  Country: US (occurrence: US)
  Receive Date: 20120927
  Receipt Date: 20120927
  Transmission Date: 20130627
  Serious: No
  Sender: FDA-Public Use
  Company Number: US-ASTRAZENECA-2012SE65826

PATIENT
  Age: 35 Year
  Sex: Male

DRUGS (5)
  1. LISINOPRIL [Suspect]
     Route: 048
  2. CRESTOR [Suspect]
     Route: 048
  3. NORVASC [Concomitant]
  4. CLONIDINE HCL [Concomitant]
  5. BENICAR HCT [Concomitant]

REACTIONS (2)
  - Malaise [Unknown]
  - Cough [Unknown]
